FAERS Safety Report 6471198-9 (Version None)
Quarter: 2009Q4

REPORT INFORMATION
  Report Type: 
  Country: None (occurrence: None)
  Receive Date: 20091203
  Receipt Date: 20080221
  Transmission Date: 20100525
  Serious: Yes (Other)
  Sender: FDA-Public Use
  Company Number: US-ELI_LILLY_AND_COMPANY-US200802004911

PATIENT
  Sex: Female

DRUGS (4)
  1. FORTEO [Suspect]
  2. FOSAMAX [Concomitant]
  3. ENBREL [Concomitant]
  4. METHOTREXATE [Concomitant]

REACTIONS (1)
  - URETERIC CANCER [None]
